FAERS Safety Report 7648662-X (Version None)
Quarter: 2011Q3

REPORT INFORMATION
  Report Type: 
  Country: None (occurrence: None)
  Receive Date: 20110801
  Receipt Date: 20110731
  Transmission Date: 20111222
  Serious: No
  Sender: FDA-Public Use
  Company Number: US-PFIZER INC-2011173719

PATIENT
  Sex: Male
  Weight: 81.633 kg

DRUGS (1)
  1. LYRICA [Suspect]
     Indication: FIBROMYALGIA
     Dosage: 50 MG, 2X/DAY
     Route: 048
     Dates: start: 20110729

REACTIONS (4)
  - NAUSEA [None]
  - DIZZINESS [None]
  - HEADACHE [None]
  - MUSCLE TWITCHING [None]
